FAERS Safety Report 5080758-1 (Version None)
Quarter: 2006Q3

REPORT INFORMATION
  Report Type: 
  Country: None (occurrence: None)
  Receive Date: 20060809
  Receipt Date: 20060724
  Transmission Date: 20061208
  Serious: Yes (Hospitalization, Other)
  Sender: FDA-Public Use
  Company Number: 2006AL001976

PATIENT
  Sex: Female

DRUGS (1)
  1. IBUPROFEN [Suspect]
     Dosage: 400 MG; TID; PO
     Route: 048
     Dates: start: 20060103, end: 20060113

REACTIONS (2)
  - HYPERAESTHESIA [None]
  - SKELETAL INJURY [None]
